FAERS Safety Report 9812786 (Version 1)
Quarter: 2014Q1

REPORT INFORMATION
  Report Type: Spontaneous
  Country: US (occurrence: None)
  Receive Date: 20140109
  Receipt Date: 20140109
  Transmission Date: 20141002
  Serious: Yes (Hospitalization, Other)
  Sender: FDA-Public Use
  Company Number: None

PATIENT
  Age: 23 Year
  Sex: Female
  Weight: 61.24 kg

DRUGS (1)
  1. MIRVASO [Suspect]
     Indication: SKIN DISORDER
     Dosage: PEA SIZE AMOUNT
     Route: 061
     Dates: start: 20131224, end: 20140101

REACTIONS (4)
  - Pyrexia [None]
  - Flushing [None]
  - Erythema [None]
  - Pain [None]
